FAERS Safety Report 19176559 (Version 3)
Quarter: 2021Q2

REPORT INFORMATION
  Report Type: Report from Study
  Country: US (occurrence: US)
  Receive Date: 20210423
  Receipt Date: 20210527
  Transmission Date: 20210717
  Serious: Yes (Hospitalization)
  Sender: FDA-Public Use
  Company Number: US-SEATTLE GENETICS-2021SGN01622

PATIENT
  Sex: Female

DRUGS (1)
  1. TUCATINIB [Suspect]
     Active Substance: TUCATINIB
     Indication: BREAST CANCER FEMALE
     Dosage: UNK

REACTIONS (8)
  - Computerised tomogram abnormal [Unknown]
  - Skin texture abnormal [Unknown]
  - Fatigue [Unknown]
  - Nausea [Unknown]
  - Hypersomnia [Unknown]
  - Blood calcium increased [Unknown]
  - Unevaluable event [Unknown]
  - Skin exfoliation [Unknown]
